FAERS Safety Report 6634038-0 (Version None)
Quarter: 2010Q1

REPORT INFORMATION
  Report Type: 
  Country: None (occurrence: None)
  Receive Date: 20100315
  Receipt Date: 20100309
  Transmission Date: 20100710
  Serious: Yes (Life-Threatening, Other)
  Sender: FDA-Public Use
  Company Number: PHHY2010FR14042

PATIENT
  Sex: Female

DRUGS (4)
  1. TEGRETOL [Suspect]
     Dosage: UNK
     Dates: start: 20100128
  2. CLONAZEPAM [Suspect]
     Dosage: UNK
     Dates: start: 20100128
  3. EPITOMAX [Suspect]
     Dosage: UNK
     Dates: start: 20100128
  4. IMIJECT [Concomitant]

REACTIONS (6)
  - DIPLOPIA [None]
  - DISTURBANCE IN ATTENTION [None]
  - DRUG LEVEL INCREASED [None]
  - INTENTIONAL OVERDOSE [None]
  - NYSTAGMUS [None]
  - REFRACTION DISORDER [None]
